FAERS Safety Report 15478382 (Version 4)
Quarter: 2019Q1

REPORT INFORMATION
  Report Type: Spontaneous
  Country: US (occurrence: US)
  Receive Date: 20181009
  Receipt Date: 20190104
  Transmission Date: 20190417
  Serious: No
  Sender: FDA-Public Use
  Company Number: US-SA-2018SA278541

PATIENT
  Age: 66 Year
  Sex: Female

DRUGS (2)
  1. KEVZARA [Suspect]
     Active Substance: SARILUMAB
     Dosage: 200 MG, QOW
     Route: 058
     Dates: start: 201810
  2. KEVZARA [Suspect]
     Active Substance: SARILUMAB
     Indication: RHEUMATOID ARTHRITIS
     Dosage: 200 MG, QOW, INJECTION
     Route: 058
     Dates: start: 201808

REACTIONS (7)
  - Blood pressure increased [Unknown]
  - Diarrhoea [Unknown]
  - Peripheral swelling [Unknown]
  - Blood glucose increased [Unknown]
  - Pruritus [Unknown]
  - Urinary tract infection [Unknown]
  - Bronchitis [Unknown]

NARRATIVE: CASE EVENT DATE: 2018
